FAERS Safety Report 8891534 (Version 1)
Quarter: 2012Q4

REPORT INFORMATION
  Report Type: 
  Country: GB (occurrence: GB)
  Receive Date: 20121107
  Receipt Date: 20121107
  Transmission Date: 20130627
  Serious: Yes (Other)
  Sender: FDA-Public Use
  Company Number: GB-INCYTE CORPORATION-2012IN002041

PATIENT
  Sex: Male

DRUGS (3)
  1. JAKAVI [Suspect]
     Indication: MYELOFIBROSIS
     Dosage: 20 mg, bid
     Route: 048
     Dates: start: 20120808, end: 20120926
  2. JAKAVI [Suspect]
     Dosage: 15 mg, bid
     Route: 048
     Dates: start: 20121017
  3. ACYCLOVIR [Concomitant]
     Dosage: UNK

REACTIONS (1)
  - Herpes zoster [Recovered/Resolved]
